FAERS Safety Report 11641043 (Version 2)
Quarter: 2015Q4

REPORT INFORMATION
  Report Type: Spontaneous
  Country: NO (occurrence: NO)
  Receive Date: 20151019
  Receipt Date: 20151021
  Transmission Date: 20160304
  Serious: Yes (Death, Other)
  Sender: FDA-Public Use
  Company Number: NO-JNJFOC-20151005325

PATIENT
  Age: 46 Year
  Sex: Male

DRUGS (14)
  1. DOXORUBICIN [Suspect]
     Active Substance: DOXORUBICIN
     Indication: PRECURSOR T-LYMPHOBLASTIC LYMPHOMA/LEUKAEMIA
     Dosage: THE INTENSIFIED HAMMERSMITH REGIMEN (INDUCTION-PHASE) ADMINISTERED ON DAYS: 8,15,22
     Route: 042
  2. TIOGUANINE [Suspect]
     Active Substance: THIOGUANINE ANHYDROUS
     Indication: PRECURSOR T-LYMPHOBLASTIC LYMPHOMA/LEUKAEMIA
     Dosage: THE INTENSIFIED HAMMERSMITH REGIMEN (EARLY CONSOLIDATION-PHASE) ADMINISTERED DAYS: 43-47
     Route: 042
  3. CYTARABINE. [Suspect]
     Active Substance: CYTARABINE
     Indication: PRECURSOR T-LYMPHOBLASTIC LYMPHOMA/LEUKAEMIA
     Dosage: THE INTENSIFIED HAMMERSMITH REGIMEN (INTRATHECAL TREATMENT-PHASE) ADMINISTERED DAYS: 78,92,106
     Route: 037
  4. CYTARABINE. [Suspect]
     Active Substance: CYTARABINE
     Indication: PRECURSOR T-LYMPHOBLASTIC LYMPHOMA/LEUKAEMIA
     Dosage: THE INTENSIFIED HAMMERSMITH REGIMEN (EARLY CONSOLIDATION-PHASE) ADMINISTERED DAYS: 43-47
     Route: 037
  5. MERCAPTOPURINE. [Suspect]
     Active Substance: MERCAPTOPURINE
     Indication: PRECURSOR T-LYMPHOBLASTIC LYMPHOMA/LEUKAEMIA
     Dosage: THE INTENSIFIED HAMMERSMITH REGIMEN (EARLY CONSOLIDATION-PHASE) ADMINISTERED DAYS: 64-111
     Route: 042
  6. DAUNORUBICIN [Suspect]
     Active Substance: DAUNORUBICIN
     Indication: PRECURSOR T-LYMPHOBLASTIC LYMPHOMA/LEUKAEMIA
     Dosage: THE INTENSIFIED HAMMERSMITH REGIMEN (EARLY CONSOLIDATION-PHASE) ADMINISTERED DAYS: 43, 45, 47
     Route: 042
  7. VINCRISTINE [Suspect]
     Active Substance: VINCRISTINE
     Indication: PRECURSOR T-LYMPHOBLASTIC LYMPHOMA/LEUKAEMIA
     Dosage: MAXIMUM 2.0 MG; INTENSIFIED HAMMERSMITH REGIMEN (INDUCTION-PHASE) ADMINISTERED ON DAYS 1,8,15,22,29
     Route: 042
  8. METHOTREXATE [Suspect]
     Active Substance: METHOTREXATE
     Indication: PRECURSOR T-LYMPHOBLASTIC LYMPHOMA/LEUKAEMIA
     Dosage: THE INTENSIFIED HAMMERSMITH REGIMEN (EARLY CONSOLIDATION-PHASE) ADMINISTERED DAYS: 64-78
     Route: 042
  9. CYCLOPHOSPHAMIDE. [Suspect]
     Active Substance: CYCLOPHOSPHAMIDE
     Indication: PRECURSOR T-LYMPHOBLASTIC LYMPHOMA/LEUKAEMIA
     Dosage: THE INTENSIFIED HAMMERSMITH REGIMEN (INDUCTION-PHASE) ADMINISTERED ON DAYS 15,22,29
     Route: 042
  10. PREDNISOLONE. [Suspect]
     Active Substance: PREDNISOLONE
     Indication: PRECURSOR T-LYMPHOBLASTIC LYMPHOMA/LEUKAEMIA
     Route: 037
  11. METHOTREXATE [Suspect]
     Active Substance: METHOTREXATE
     Indication: PRECURSOR T-LYMPHOBLASTIC LYMPHOMA/LEUKAEMIA
     Dosage: THE INTENSIFIED HAMMERSMITH REGIMEN (INTRATHECAL TREATMENT-PHASE) ADMINISTERED DAYS: 15,29,43, 46
     Route: 037
  12. ASPARAGINASE [Suspect]
     Active Substance: ASPARAGINASE
     Indication: PRECURSOR T-LYMPHOBLASTIC LYMPHOMA/LEUKAEMIA
     Dosage: THE INTENSIFIED HAMMERSMITH REGIMEN (INDUCTION-PHASE) ADMINISTERED ON DAYS: 8-21
     Route: 042
  13. PREDNISOLON [Suspect]
     Active Substance: PREDNISOLONE
     Indication: PRECURSOR T-LYMPHOBLASTIC LYMPHOMA/LEUKAEMIA
     Dosage: THE INTENSIFIED HAMMERSMITH REGIMEN (INDUCTION-PHASE) ADMINISTERED DAYS 1-29, TAPER TO DAY 35
     Route: 048
  14. FILGRASTIM [Suspect]
     Active Substance: FILGRASTIM
     Indication: PERIPHERAL BLOOD STEM CELL APHERESIS
     Route: 065

REACTIONS (4)
  - Venoocclusive disease [Fatal]
  - Haematotoxicity [Unknown]
  - Febrile neutropenia [Unknown]
  - Multi-organ failure [Fatal]
